FAERS Safety Report 5387188-3 (Version None)
Quarter: 2007Q3

REPORT INFORMATION
  Report Type: 
  Country: None (occurrence: None)
  Receive Date: 20070711
  Receipt Date: 20070702
  Transmission Date: 20080115
  Serious: Yes (Other)
  Sender: FDA-Public Use
  Company Number: 163-20785-07040799

PATIENT
  Age: 57 Year
  Sex: Female

DRUGS (2)
  1. THALOMID [Suspect]
     Indication: MULTIPLE MYELOMA
     Dosage: 200 MG, 4 IN 1 D, ORAL
     Route: 047
     Dates: start: 20030710, end: 20030101
  2. DEXAMETHASONE TAB [Suspect]
     Indication: MULTIPLE MYELOMA
     Dosage: PULSE
     Dates: start: 20030101, end: 20030101

REACTIONS (4)
  - ARTHRALGIA [None]
  - FEMUR FRACTURE [None]
  - HIP ARTHROPLASTY [None]
  - OSTEONECROSIS [None]
